FAERS Safety Report 7357170-5 (Version None)
Quarter: 2011Q1

REPORT INFORMATION
  Report Type: 
  Country: None (occurrence: None)
  Receive Date: 20110317
  Receipt Date: 20110311
  Transmission Date: 20110831
  Serious: Yes (Other)
  Sender: FDA-Public Use
  Company Number: US-PFIZER INC-2007036965

PATIENT

DRUGS (2)
  1. NEURONTIN [Suspect]
     Indication: PAIN
  2. NEURONTIN [Suspect]
     Indication: NERVE INJURY
     Dosage: UNK

REACTIONS (3)
  - AMNESIA [None]
  - THINKING ABNORMAL [None]
  - SUICIDAL IDEATION [None]
